FAERS Safety Report 7093272-9 (Version None)
Quarter: 2010Q4

REPORT INFORMATION
  Report Type: 
  Country: None (occurrence: None)
  Receive Date: 20101110
  Receipt Date: 20101103
  Transmission Date: 20110411
  Serious: Yes (Other)
  Sender: FDA-Public Use
  Company Number: US-NAPPMUNDI-USA-2010-0050978

PATIENT
  Sex: Male

DRUGS (2)
  1. OXYCONTIN [Suspect]
     Indication: PRODUCT USED FOR UNKNOWN INDICATION
     Dosage: 40 MG, Q12H
     Route: 048
     Dates: start: 20101001
  2. OXYCONTIN [Suspect]
     Dosage: 80 MG, Q12H
     Route: 048
     Dates: start: 20101001

REACTIONS (4)
  - DRUG INEFFECTIVE [None]
  - GASTRIC DISORDER [None]
  - HAEMATEMESIS [None]
  - NAUSEA [None]
